FAERS Safety Report 19196982 (Version 1)
Quarter: 2021Q2

REPORT INFORMATION
  Report Type: Spontaneous
  Country: FR (occurrence: FR)
  Receive Date: 20210430
  Receipt Date: 20210430
  Transmission Date: 20210717
  Serious: Yes (Hospitalization)
  Sender: FDA-Public Use
  Company Number: FR-AUROBINDO-AUR-APL-2021-017356

PATIENT
  Age: 68 Year
  Sex: Male
  Weight: 70 kg

DRUGS (6)
  1. LIDOCAINE. [Concomitant]
     Active Substance: LIDOCAINE
     Indication: INDUCTION OF ANAESTHESIA
     Dosage: 50 MILLIGRAM 1 TOTAL
     Route: 065
     Dates: start: 20210331, end: 20210331
  2. LIPURO [Interacting]
     Active Substance: PROPOFOL
     Indication: INDUCTION OF ANAESTHESIA
     Dosage: 300 MILLIGRAM 1 TOTAL
     Route: 042
     Dates: start: 20210331, end: 20210331
  3. REMIFENTANIL [Interacting]
     Active Substance: REMIFENTANIL
     Indication: INDUCTION OF ANAESTHESIA
     Dosage: 64 MILLIGRAM 1 TOTAL
     Route: 042
     Dates: start: 20210331, end: 20210331
  4. KETAMINE [Interacting]
     Active Substance: KETAMINE
     Indication: INDUCTION OF ANAESTHESIA
     Dosage: 20 MILLIGRAM 1 TOTAL
     Route: 042
     Dates: start: 20210331, end: 20210331
  5. SUXAMETHONIUM [Concomitant]
     Active Substance: SUCCINYLCHOLINE
     Indication: INDUCTION OF ANAESTHESIA
     Dosage: 1 DOSAGE FORM 1 TOATAL
     Route: 042
     Dates: start: 20210331, end: 20210331
  6. ATENOLOL. [Suspect]
     Active Substance: ATENOLOL
     Indication: HYPERTENSION
     Dosage: 50 MILLIGRAM, ONCE A DAY
     Route: 048

REACTIONS (1)
  - Hypotension [Recovered/Resolved]

NARRATIVE: CASE EVENT DATE: 20210331
